FAERS Safety Report 19745092 (Version 2)
Quarter: 2021Q3

REPORT INFORMATION
  Report Type: Spontaneous
  Country: NL (occurrence: NL)
  Receive Date: 20210825
  Receipt Date: 20210914
  Transmission Date: 20211014
  Serious: Yes (Hospitalization, Other)
  Sender: FDA-Public Use
  Company Number: NL-LUPIN PHARMACEUTICALS INC.-2021-15687

PATIENT
  Age: 73 Year
  Sex: Male
  Weight: 75 kg

DRUGS (2)
  1. MORPHINE [Suspect]
     Active Substance: MORPHINE
     Indication: POSTOPERATIVE ANALGESIA
     Dosage: 0.5 MILLIGRAM, A BACKGROUND INFUSION OF 0.5 MG/H, A BOLUS ADMINISTRATION OF 1MG WITH A LOCK?OUT PERI
     Route: 065
  2. MORPHINE [Suspect]
     Active Substance: MORPHINE
     Dosage: 1 MILLIGRAM, A BOLUS ADMINISTRATION OF 1MG WITH A LOCK?OUT PERIOD OF 5 MINUTES AND A MAXIMUM ADMINIS
     Route: 065

REACTIONS (3)
  - Respiratory depression [Recovered/Resolved]
  - Overdose [Unknown]
  - Drug titration error [Unknown]
